FAERS Safety Report 13807386 (Version 1)
Quarter: 2017Q3

REPORT INFORMATION
  Report Type: Spontaneous
  Country: US (occurrence: US)
  Receive Date: 20170728
  Receipt Date: 20170728
  Transmission Date: 20171127
  Serious: No
  Sender: FDA-Public Use
  Company Number: US-SHIRE-US201714842

PATIENT
  Age: 44 Year
  Sex: Male
  Weight: 67.12 kg

DRUGS (1)
  1. VYVANSE [Suspect]
     Active Substance: LISDEXAMFETAMINE DIMESYLATE
     Indication: ATTENTION DEFICIT/HYPERACTIVITY DISORDER
     Dosage: 15 MG, 2X/DAY:BID
     Route: 048
     Dates: start: 20170727

REACTIONS (5)
  - Drug administration error [Not Recovered/Not Resolved]
  - Feeling abnormal [Unknown]
  - Therapeutic response shortened [Unknown]
  - Insomnia [Unknown]
  - Inappropriate schedule of drug administration [Not Recovered/Not Resolved]

NARRATIVE: CASE EVENT DATE: 20170727
